FAERS Safety Report 7586746-5 (Version None)
Quarter: 2011Q3

REPORT INFORMATION
  Report Type: 
  Country: None (occurrence: None)
  Receive Date: 20110701
  Receipt Date: 20110620
  Transmission Date: 20111222
  Serious: Yes (Death)
  Sender: FDA-Public Use
  Company Number: JP-MERCK-1106USA01862

PATIENT
  Age: 99 Year
  Sex: Female

DRUGS (2)
  1. PLETAL [Suspect]
     Route: 048
     Dates: end: 20110610
  2. PEPCID RPD [Suspect]
     Route: 048
     Dates: end: 20110610

REACTIONS (2)
  - GRANULOCYTE COUNT DECREASED [None]
  - WHITE BLOOD CELL COUNT DECREASED [None]
